FAERS Safety Report 17042372 (Version 1)
Quarter: 2019Q4

REPORT INFORMATION
  Report Type: Spontaneous
  Country: US (occurrence: US)
  Receive Date: 20191017
  Receipt Date: 20191017
  Transmission Date: 20200122
  Serious: No
  Sender: FDA-Public Use
  Company Number: None

PATIENT
  Sex: Male

DRUGS (1)
  1. GENOTROPIN [Suspect]
     Active Substance: SOMATROPIN
     Indication: HYPOPITUITARISM
     Dosage: ?          OTHER DOSE:1.6MG;OTHER FREQUENCY:6 NIGHTS/WK;?
     Route: 058

REACTIONS (3)
  - Incorrect dose administered by device [None]
  - Device malfunction [None]
  - Device difficult to use [None]
